FAERS Safety Report 11705488 (Version 1)
Quarter: 2015Q4

REPORT INFORMATION
  Report Type: Spontaneous
  Country: GB (occurrence: GB)
  Receive Date: 20151106
  Receipt Date: 20151106
  Transmission Date: 20160304
  Serious: Yes (Death)
  Sender: FDA-Public Use
  Company Number: GB-WATSON-2015-23445

PATIENT
  Age: 68 Year
  Sex: Female

DRUGS (7)
  1. SIMVADOC [Concomitant]
     Indication: PSYCHOTIC DISORDER
     Dosage: 40 MG, DAILY
     Route: 048
  2. CLOZARIL [Suspect]
     Active Substance: CLOZAPINE
     Indication: SCHIZOPHRENIA
     Dosage: 100 MG, DAILY
     Route: 048
     Dates: start: 20080728
  3. LEVOTHYROXINE. [Concomitant]
     Active Substance: LEVOTHYROXINE
     Indication: THYROID DISORDER
     Dosage: 25 ?G, DAILY
     Route: 048
  4. RISPERIDONE. [Concomitant]
     Active Substance: RISPERIDONE
     Dosage: 3.75 MG, DAILY
     Route: 048
  5. RISPERIDONE. [Concomitant]
     Active Substance: RISPERIDONE
     Indication: PSYCHOTIC DISORDER
     Dosage: 3 MG, DAILY; 2 TO 3 MG, DAILY
     Route: 048
  6. CITALOPRAM [Suspect]
     Active Substance: CITALOPRAM HYDROBROMIDE
     Indication: DEPRESSION
     Dosage: 40 MG, BID
     Route: 048
  7. HYOSCINE HYDROBROMIDE [Concomitant]
     Active Substance: SCOPOLAMINE
     Indication: ADVERSE EVENT
     Dosage: 350 MG, DAILY
     Route: 048

REACTIONS (6)
  - Hyperlipidaemia [Unknown]
  - Dyspnoea [Unknown]
  - Type 2 diabetes mellitus [Fatal]
  - Myocardial ischaemia [Fatal]
  - Discomfort [Unknown]
  - Glycosylated haemoglobin increased [Unknown]

NARRATIVE: CASE EVENT DATE: 2010
